FAERS Safety Report 8414997-6 (Version None)
Quarter: 2012Q2

REPORT INFORMATION
  Report Type: 
  Country: None (occurrence: None)
  Receive Date: 20120606
  Receipt Date: 20120327
  Transmission Date: 20120825
  Serious: No
  Sender: FDA-Public Use
  Company Number: US-GLAXOSMITHKLINE-A0971353A

PATIENT
  Age: 10 Year
  Sex: Male

DRUGS (4)
  1. KLONOPIN [Concomitant]
     Indication: EPILEPSY
  2. PENICILLIN [Concomitant]
  3. LAMICTAL [Suspect]
     Indication: EPILEPSY
     Dosage: 112.5MG PER DAY
     Route: 048
     Dates: start: 20100901
  4. ACETAMINOPHEN [Concomitant]

REACTIONS (3)
  - OROPHARYNGEAL PAIN [None]
  - RASH [None]
  - PYREXIA [None]
